FAERS Safety Report 7869703-0 (Version None)
Quarter: 2011Q4

REPORT INFORMATION
  Report Type: 
  Country: None (occurrence: None)
  Receive Date: 20111028
  Receipt Date: 20110107
  Transmission Date: 20120403
  Serious: No
  Sender: FDA-Public Use
  Company Number: US-AMGEN-USASP2010011886

PATIENT
  Age: 45 Year
  Sex: Female

DRUGS (1)
  1. ENBREL [Suspect]
     Indication: RHEUMATOID ARTHRITIS
     Dosage: 50 MG, QWK
     Dates: start: 20100806

REACTIONS (6)
  - ASTHENIA [None]
  - SNEEZING [None]
  - NASAL CONGESTION [None]
  - ACNE PUSTULAR [None]
  - FURUNCLE [None]
  - PAIN [None]
